FAERS Safety Report 25189683 (Version 1)
Quarter: 2025Q2

REPORT INFORMATION
  Report Type: Spontaneous
  Country: US (occurrence: US)
  Receive Date: 20250411
  Receipt Date: 20250411
  Transmission Date: 20250717
  Serious: Yes (Other)
  Sender: EMD SERONO INC
  Company Number: UM-Merck Healthcare KGaA-2025004505

PATIENT
  Sex: Female

DRUGS (1)
  1. REBIF [Suspect]
     Active Substance: INTERFERON BETA-1A
     Indication: Multiple sclerosis
     Dates: start: 202311

REACTIONS (4)
  - Multiple sclerosis relapse [Unknown]
  - Syncope [Unknown]
  - Migraine [Unknown]
  - Drug ineffective [Unknown]
